FAERS Safety Report 6289714-9 (Version None)
Quarter: 2009Q3

REPORT INFORMATION
  Report Type: 
  Country: None (occurrence: None)
  Receive Date: 20090730
  Receipt Date: 20080625
  Transmission Date: 20100115
  Serious: Yes (Other)
  Sender: FDA-Public Use
  Company Number: US-BRISTOL-MYERS SQUIBB COMPANY-14241863

PATIENT
  Age: 68 Year
  Sex: Female

DRUGS (4)
  1. COUMADIN [Suspect]
     Indication: THROMBOSIS
     Dates: start: 19870101
  2. ALENDRONATE SODIUM [Interacting]
     Dosage: FORM=TABLET ALENDRONATE SODIUM TABLET,5MG,10MG,40MG,35MG,70MG(ALENDRONIC ACID) TOTAL OF 3 DOSES
     Route: 048
     Dates: start: 20080425
  3. PRAVASTATIN SODIUM [Concomitant]
  4. FOLIC ACID [Concomitant]

REACTIONS (4)
  - DRUG INTERACTION [None]
  - INTERNATIONAL NORMALISED RATIO DECREASED [None]
  - LIMB DISCOMFORT [None]
  - PHLEBITIS [None]
